FAERS Safety Report 19813825 (Version 1)
Quarter: 2021Q3

REPORT INFORMATION
  Report Type: Spontaneous
  Country: FR (occurrence: FR)
  Receive Date: 20210909
  Receipt Date: 20210909
  Transmission Date: 20211014
  Serious: Yes (Hospitalization)
  Sender: FDA-Public Use
  Company Number: FR-MYLANLABS-2021M1060028

PATIENT
  Age: 68 Year
  Sex: Male
  Weight: 74 kg

DRUGS (3)
  1. LEVOFLOXACIN. [Suspect]
     Active Substance: LEVOFLOXACIN
     Indication: URINARY TRACT INFECTION
     Dosage: UNK
     Route: 048
     Dates: start: 20210326, end: 20210331
  2. OXALIPLATINE [Concomitant]
     Active Substance: OXALIPLATIN
     Dosage: 95 MILLIGRAM
     Route: 042
     Dates: start: 20210318
  3. GEMZAR [Concomitant]
     Active Substance: GEMCITABINE HYDROCHLORIDE
     Dosage: 960 MILLIGRAM
     Route: 042
     Dates: start: 20210318

REACTIONS (1)
  - Generalised tonic-clonic seizure [Recovered/Resolved]

NARRATIVE: CASE EVENT DATE: 20210330
